FAERS Safety Report 16060307 (Version 1)
Quarter: 2019Q1

REPORT INFORMATION
  Report Type: Spontaneous
  Country: GB (occurrence: GB)
  Receive Date: 20190312
  Receipt Date: 20190312
  Transmission Date: 20190418
  Serious: Yes (Other)
  Sender: FDA-Public Use
  Company Number: GB-TEVA-2019-GB-1022079

PATIENT
  Age: 81 Year
  Sex: Male
  Weight: 108 kg

DRUGS (4)
  1. IRBESARTAN AND HYDROCHLOROTHIAZIDE [Suspect]
     Active Substance: HYDROCHLOROTHIAZIDE\IRBESARTAN
     Indication: ESSENTIAL HYPERTENSION
     Dosage: 1 DOSAGE FORMS DAILY; MORNING. 300MG/1.5MG.
     Route: 048
     Dates: start: 20070801, end: 20181213
  2. NIFEDIPINE. [Concomitant]
     Active Substance: NIFEDIPINE
  3. SALBUTAMOL [Concomitant]
     Active Substance: ALBUTEROL
  4. COCODAMOL [Concomitant]
     Active Substance: ACETAMINOPHEN\CODEINE PHOSPHATE

REACTIONS (1)
  - Basal cell carcinoma [Unknown]

NARRATIVE: CASE EVENT DATE: 20181009
